FAERS Safety Report 6829445-7 (Version None)
Quarter: 2010Q3

REPORT INFORMATION
  Report Type: 
  Country: None (occurrence: None)
  Receive Date: 20100709
  Receipt Date: 20070313
  Transmission Date: 20110219
  Serious: Yes (Other)
  Sender: FDA-Public Use
  Company Number: US-PFIZER INC-2007019727

PATIENT
  Sex: Female

DRUGS (3)
  1. CHANTIX [Suspect]
     Dates: start: 20070311
  2. ADVAIR DISKUS 100/50 [Concomitant]
  3. SPIRIVA [Concomitant]

REACTIONS (1)
  - DYSPNOEA [None]
